FAERS Safety Report 4658914-3 (Version None)
Quarter: 2005Q2

REPORT INFORMATION
  Report Type: 
  Country: None (occurrence: None)
  Receive Date: 20050509
  Receipt Date: 20050426
  Transmission Date: 20051028
  Serious: Yes (Other)
  Sender: FDA-Public Use
  Company Number: 2005066701

PATIENT
  Age: 56 Year
  Sex: Female
  Weight: 72.5755 kg

DRUGS (5)
  1. BEXTRA [Suspect]
     Indication: ARTHRITIS
     Dosage: 20 MG (20 MG, 1 IN 1 D)
     Dates: start: 20030101
  2. FLUOXETINE HCL [Concomitant]
  3. MONTELUKAST SODIUM (MONTELUKAST SODIUM) [Concomitant]
  4. ESTRADIOL [Concomitant]
  5. PROGESTERONE [Concomitant]

REACTIONS (5)
  - APHTHOUS STOMATITIS [None]
  - ARTHRITIS [None]
  - CONDITION AGGRAVATED [None]
  - GLOSSODYNIA [None]
  - KNEE ARTHROPLASTY [None]
